FAERS Safety Report 4776567-0 (Version None)
Quarter: 2005Q3

REPORT INFORMATION
  Report Type: 
  Country: None (occurrence: None)
  Receive Date: 20050915
  Receipt Date: 20050902
  Transmission Date: 20060218
  Serious: Yes (Hospitalization)
  Sender: FDA-Public Use
  Company Number: 2005123918

PATIENT
  Age: 69 Year
  Sex: Female

DRUGS (2)
  1. CABERGOLINE [Suspect]
     Indication: RESTLESS LEGS SYNDROME
     Dosage: 3 MG (DAILY), ORAL
     Route: 048
     Dates: end: 20050101
  2. TOLTERODINE TARTRATE [Concomitant]

REACTIONS (7)
  - CHILLS [None]
  - CYSTITIS [None]
  - DRUG EFFECT DECREASED [None]
  - GAMMA-GLUTAMYLTRANSFERASE INCREASED [None]
  - POLYNEUROPATHY [None]
  - PYREXIA [None]
  - TRANSAMINASES INCREASED [None]
